FAERS Safety Report 6773337-9 (Version None)
Quarter: 2010Q2

REPORT INFORMATION
  Report Type: 
  Country: None (occurrence: None)
  Receive Date: 20100616
  Receipt Date: 20100406
  Transmission Date: 20101027
  Serious: Yes (Other)
  Sender: FDA-Public Use
  Company Number: US-ABBOTT-10P-163-0636843-00

PATIENT
  Sex: Male

DRUGS (11)
  1. TRILIPIX [Suspect]
     Indication: HYPERLIPIDAEMIA
     Dates: start: 20100216, end: 20100301
  2. MS CONTIN [Concomitant]
     Indication: BACK PAIN
  3. OXYCODONE [Concomitant]
     Indication: BACK PAIN
  4. FUROSEMIDE [Concomitant]
     Indication: HYPERTENSION
  5. LEVOTHYROXINE SODIUM [Concomitant]
     Indication: HYPOTHYROIDISM
  6. ALPRAZOLAM [Concomitant]
     Indication: ANXIETY
  7. ZOLPIDEM [Concomitant]
     Indication: INSOMNIA
  8. ZIAC [Concomitant]
     Indication: HYPERTENSION
  9. METFORMIN [Concomitant]
     Indication: OBESITY
  10. POTASSIUM [Concomitant]
     Indication: ELECTROLYTE SUBSTITUTION THERAPY
  11. INHALERS [Concomitant]
     Indication: DRUG USE FOR UNKNOWN INDICATION
     Route: 055

REACTIONS (1)
  - PANCREATITIS [None]
